FAERS Safety Report 23326118 (Version 2)
Quarter: 2024Q2

REPORT INFORMATION
  Report Type: Spontaneous
  Country: US (occurrence: US)
  Receive Date: 20231221
  Receipt Date: 20240503
  Transmission Date: 20240715
  Serious: No
  Sender: FDA-Public Use
  Company Number: US-BRISTOL-MYERS SQUIBB COMPANY-2023-183545

PATIENT
  Age: 60 Year
  Sex: Female
  Weight: 69.85 kg

DRUGS (2)
  1. ELIQUIS [Suspect]
     Active Substance: APIXABAN
     Indication: Embolism venous
     Dosage: EVERY DAY FOR A YEAR
     Route: 048
  2. ELIQUIS [Suspect]
     Active Substance: APIXABAN
     Indication: Cardiac ventricular thrombosis

REACTIONS (13)
  - Hypersensitivity [Unknown]
  - Influenza [Unknown]
  - Mouth haemorrhage [Unknown]
  - Illness [Unknown]
  - Throat tightness [Unknown]
  - Ear pain [Unknown]
  - Abdominal pain upper [Unknown]
  - Vomiting [Unknown]
  - Memory impairment [Unknown]
  - Frustration tolerance decreased [Unknown]
  - Contrast media toxicity [Unknown]
  - Speech disorder [Unknown]
  - Oropharyngeal pain [Unknown]
